FAERS Safety Report 24154292 (Version 1)
Quarter: 2024Q3

REPORT INFORMATION
  Report Type: Spontaneous
  Country: US (occurrence: US)
  Receive Date: 20240730
  Receipt Date: 20240730
  Transmission Date: 20241017
  Serious: Yes (Other)
  Sender: REGENERON
  Company Number: US-REGENERON PHARMACEUTICALS, INC.-2024-102800

PATIENT
  Sex: Female

DRUGS (3)
  1. LIBTAYO [Suspect]
     Active Substance: CEMIPLIMAB-RWLC
     Indication: Squamous cell carcinoma
     Dosage: 350 MG, Q3W
     Dates: start: 20221228
  2. INSULIN DEGLUDEC FLEXTOUCH [Concomitant]
     Indication: Type 1 diabetes mellitus
  3. NOVOLOG [Concomitant]
     Active Substance: INSULIN ASPART
     Indication: Type 1 diabetes mellitus

REACTIONS (6)
  - Rheumatoid arthritis [Recovering/Resolving]
  - Type 1 diabetes mellitus [Unknown]
  - Gingival swelling [Recovered/Resolved]
  - Lip swelling [Recovered/Resolved]
  - Liver function test increased [Unknown]
  - Weight decreased [Unknown]

NARRATIVE: CASE EVENT DATE: 20230401
